FAERS Safety Report 6038744-0 (Version None)
Quarter: 2009Q1

REPORT INFORMATION
  Report Type: 
  Country: None (occurrence: None)
  Receive Date: 20090115
  Receipt Date: 20090107
  Transmission Date: 20090719
  Serious: Yes (Death, Hospitalization)
  Sender: FDA-Public Use
  Company Number: US-GILEAD-2008-0019652

PATIENT
  Sex: Male
  Weight: 109.41 kg

DRUGS (10)
  1. LETAIRIS [Suspect]
     Indication: PULMONARY ARTERIAL HYPERTENSION
     Route: 048
     Dates: start: 20080401, end: 20081215
  2. LASIX [Concomitant]
  3. TIAZAC [Concomitant]
  4. ATENOLOL [Concomitant]
  5. ADVAIR DISKUS 100/50 [Concomitant]
  6. GLYBURIDE [Concomitant]
  7. GLUCOPHAGE [Concomitant]
  8. POTASSIUM CHLORIDE [Concomitant]
  9. VICODIN ES [Concomitant]
  10. NEURONTIN [Concomitant]

REACTIONS (4)
  - ACUTE RESPIRATORY DISTRESS SYNDROME [None]
  - CHRONIC OBSTRUCTIVE PULMONARY DISEASE [None]
  - DIABETIC FOOT [None]
  - RESPIRATORY FAILURE [None]
